FAERS Safety Report 5151288-3 (Version None)
Quarter: 2006Q4

REPORT INFORMATION
  Report Type: 
  Country: None (occurrence: None)
  Receive Date: 20061115
  Receipt Date: 20061102
  Transmission Date: 20070319
  Serious: Yes (Other)
  Sender: FDA-Public Use
  Company Number: PHNU2006DE03629

PATIENT
  Sex: Male

DRUGS (1)
  1. VOLTAREN [Suspect]
     Indication: MUSCULOSKELETAL PAIN
     Route: 048

REACTIONS (2)
  - ANKYLOSING SPONDYLITIS [None]
  - DRUG INEFFECTIVE [None]
